FAERS Safety Report 7915069-7 (Version None)
Quarter: 2011Q4

REPORT INFORMATION
  Report Type: 
  Country: None (occurrence: None)
  Receive Date: 20111115
  Receipt Date: 20111110
  Transmission Date: 20120403
  Serious: Yes (Death)
  Sender: FDA-Public Use
  Company Number: US-CELGENEUS-163-21880-11072229

PATIENT
  Sex: Male

DRUGS (6)
  1. LASIX [Concomitant]
     Dosage: 20 MILLIGRAM
     Route: 048
     Dates: start: 20110623
  2. REVLIMID [Suspect]
     Indication: MULTIPLE MYELOMA
     Dosage: 5 MILLIGRAM
     Route: 048
     Dates: start: 20110427, end: 20110623
  3. AZITHROMYCIN [Concomitant]
     Route: 065
     Dates: start: 20110101
  4. PLATELETS [Concomitant]
     Route: 041
     Dates: start: 20110623
  5. OXYCODONE/ACETAMINOPHEN [Concomitant]
     Dosage: 5-325MG
     Route: 065
     Dates: start: 20110623
  6. AMOXICILLIN AND CLAVULANATE POTASSIUM [Concomitant]
     Dosage: 875-125
     Route: 048
     Dates: start: 20110623, end: 20110703

REACTIONS (1)
  - RENAL FAILURE CHRONIC [None]
